FAERS Safety Report 7380899-X (Version None)
Quarter: 2011Q1

REPORT INFORMATION
  Report Type: 
  Country: None (occurrence: None)
  Receive Date: 20110329
  Receipt Date: 20110316
  Transmission Date: 20110831
  Serious: Yes (Other)
  Sender: FDA-Public Use
  Company Number: PHHY2011BR22525

PATIENT
  Sex: Female

DRUGS (8)
  1. EXELON [Suspect]
     Dosage: 9MG/5CM2-18 MG/10CM2
     Route: 062
     Dates: start: 20110101
  2. SIMVASTATIN [Concomitant]
  3. SEROQUEL [Concomitant]
     Dosage: 25 MG, BID
     Route: 048
     Dates: start: 20110121
  4. PAMELOR [Suspect]
     Indication: DEPRESSION
     Dosage: UNK
     Route: 048
     Dates: start: 20090101
  5. BIPERIDEN HYDROCHLORIDE TAB [Concomitant]
     Indication: ANTIPLATELET THERAPY
     Dosage: 2 MG, BID
     Route: 048
     Dates: start: 20110121
  6. OMEPRAZOLE [Concomitant]
     Indication: ABDOMINAL DISCOMFORT
     Dosage: 20 MG, UNK
     Route: 048
  7. CLOPIDOGREL BISULFATE [Concomitant]
     Indication: DEMENTIA ALZHEIMER'S TYPE
     Dosage: 75 MG, UNK
     Dates: start: 20110121
  8. COUMADIN [Suspect]

REACTIONS (1)
  - PULMONARY EMBOLISM [None]
